FAERS Safety Report 16076245 (Version 3)
Quarter: 2019Q2

REPORT INFORMATION
  Report Type: Spontaneous
  Country: US (occurrence: US)
  Receive Date: 20190315
  Receipt Date: 20190522
  Transmission Date: 20190711
  Serious: Yes (Death)
  Sender: FDA-Public Use
  Company Number: US-PFIZER INC-2019110118

PATIENT
  Age: 19 Year
  Sex: Male

DRUGS (2)
  1. SUTENT [Suspect]
     Active Substance: SUNITINIB MALATE
     Indication: RENAL CANCER
     Dosage: 50 MG, CYCLIC [DAILY FOR 2 WEEKS ON AND 1 WEEK OFF]
     Route: 048
     Dates: start: 20190227
  2. SUTENT [Suspect]
     Active Substance: SUNITINIB MALATE
     Dosage: 50 MG, CYCLIC [DAILY FOR 2 WEEKS ON AND 1 WEEK OFF]
     Route: 048
     Dates: start: 201902

REACTIONS (6)
  - Fatigue [Unknown]
  - Decreased appetite [Unknown]
  - Product dose omission [Unknown]
  - Nausea [Unknown]
  - Pain [Unknown]
  - Death [Fatal]

NARRATIVE: CASE EVENT DATE: 20190304
